FAERS Safety Report 15987082 (Version 1)
Quarter: 2019Q1

REPORT INFORMATION
  Report Type: Spontaneous
  Country: MX (occurrence: MX)
  Receive Date: 20190220
  Receipt Date: 20190220
  Transmission Date: 20190418
  Serious: Yes (Death, Hospitalization, Other)
  Sender: FDA-Public Use
  Company Number: MX-PFIZER INC-2019077027

PATIENT
  Age: 78 Year
  Sex: Male
  Weight: 48 kg

DRUGS (4)
  1. GLIBENCLAMIDE/METFORMIN [Concomitant]
     Indication: DIABETES MELLITUS
     Dosage: UNK
  2. FUROSEMIDE. [Concomitant]
     Active Substance: FUROSEMIDE
     Indication: FLUID RETENTION
     Dosage: UNK
  3. CORDARONE [Suspect]
     Active Substance: AMIODARONE HYDROCHLORIDE
     Indication: CARDIAC FAILURE
     Dosage: UNK
     Route: 048
  4. GALVUS MET [Concomitant]
     Active Substance: METFORMIN HYDROCHLORIDE\VILDAGLIPTIN
     Indication: DIABETES MELLITUS
     Dosage: UNK

REACTIONS (2)
  - Abdominal pain upper [Fatal]
  - Respiratory disorder [Fatal]

NARRATIVE: CASE EVENT DATE: 20190202
